FAERS Safety Report 5145432-1 (Version None)
Quarter: 2006Q4

REPORT INFORMATION
  Report Type: 
  Country: None (occurrence: None)
  Receive Date: 20061101
  Receipt Date: 20061017
  Transmission Date: 20070319
  Serious: Yes (Other)
  Sender: FDA-Public Use
  Company Number: B0443883A

PATIENT
  Sex: Female

DRUGS (1)
  1. AMOX.TRIHYD+POT.CLAVULAN. (FORMULATION UNKNOWN) (AMOX.TRIHYD+POT.CLAVU [Suspect]
     Indication: EAR INFECTION

REACTIONS (1)
  - HEPATIC FAILURE [None]
